FAERS Safety Report 8083182-2 (Version None)
Quarter: 2012Q1

REPORT INFORMATION
  Report Type: 
  Country: None (occurrence: None)
  Receive Date: 20120127
  Receipt Date: 20110211
  Transmission Date: 20120608
  Serious: No
  Sender: FDA-Public Use
  Company Number: US-ABBOTT-11P-163-0704629-00

PATIENT
  Age: 45 Year
  Sex: Female

DRUGS (2)
  1. TRAZODONE HCL [Concomitant]
     Indication: PRODUCT USED FOR UNKNOWN INDICATION
     Dosage: 50MG EVERY NIGHT AT BEDTIME
  2. HUMIRA [Suspect]
     Indication: ANKYLOSING SPONDYLITIS
     Dates: start: 20090401

REACTIONS (4)
  - ANKYLOSING SPONDYLITIS [None]
  - DRUG DOSE OMISSION [None]
  - PAIN [None]
  - POOR QUALITY SLEEP [None]
